FAERS Safety Report 20438234 (Version 6)
Quarter: 2022Q3

REPORT INFORMATION
  Report Type: Spontaneous
  Country: US (occurrence: US)
  Receive Date: 20220207
  Receipt Date: 20220721
  Transmission Date: 20221027
  Serious: Yes (Other)
  Sender: FDA-Public Use
  Company Number: US-JNJFOC-20220161134

PATIENT
  Age: 42 Year
  Sex: Male
  Weight: 86.260 kg

DRUGS (5)
  1. STELARA [Suspect]
     Active Substance: USTEKINUMAB
     Indication: Psoriasis
     Route: 058
     Dates: start: 202110, end: 202112
  2. STELARA [Suspect]
     Active Substance: USTEKINUMAB
     Dosage: ONCE EVERY 12 WEEKS (AFTER 2 STARTER DOSES AT WEEKS 0 AND 4)
     Route: 058
     Dates: start: 20200722, end: 20211120
  3. ADDERALL [Concomitant]
     Active Substance: AMPHETAMINE ASPARTATE\AMPHETAMINE SULFATE\DEXTROAMPHETAMINE SACCHARATE\DEXTROAMPHETAMINE SULFATE
     Indication: Attention deficit hyperactivity disorder
  4. WELLBUTRIN [Concomitant]
     Active Substance: BUPROPION HYDROCHLORIDE
     Indication: Depression
  5. ABILIFY [Concomitant]
     Active Substance: ARIPIPRAZOLE
     Indication: Depression

REACTIONS (3)
  - Scleroderma [Not Recovered/Not Resolved]
  - Carpal tunnel syndrome [Not Recovered/Not Resolved]
  - Arthritis [Unknown]
